FAERS Safety Report 10058114 (Version 1)
Quarter: 2014Q2

REPORT INFORMATION
  Report Type: Spontaneous
  Country: US (occurrence: US)
  Receive Date: 20140404
  Receipt Date: 20140404
  Transmission Date: 20141212
  Serious: No
  Sender: FDA-Public Use
  Company Number: US-PFIZER INC-2014094203

PATIENT
  Sex: 0

DRUGS (2)
  1. GABAPENTIN [Suspect]
     Dosage: 600 MG, UNK
  2. GABAPENTIN [Suspect]
     Dosage: 800 MG, UNK

REACTIONS (1)
  - Dysphemia [Not Recovered/Not Resolved]
